FAERS Safety Report 16101467 (Version 1)
Quarter: 2019Q1

REPORT INFORMATION
  Report Type: Spontaneous
  Country: US (occurrence: US)
  Receive Date: 20190321
  Receipt Date: 20190321
  Transmission Date: 20190418
  Serious: No
  Sender: FDA-Public Use
  Company Number: US-ADAMAS PHARMA, LLC-2018ADA02530

PATIENT
  Sex: Female
  Weight: 44.9 kg

DRUGS (9)
  1. GOCOVRI [Suspect]
     Active Substance: AMANTADINE
     Dosage: 274 MG, 1X/DAY AT BEDTIME
     Route: 048
     Dates: start: 20180127, end: 201811
  2. NORVASC [Concomitant]
     Active Substance: AMLODIPINE BESYLATE
     Dosage: 5 MG, 1X/DAY
     Route: 048
  3. ASPIRIN. [Concomitant]
     Active Substance: ASPIRIN
     Dosage: 81 MG, 1X/DAY
     Route: 048
  4. GOCOVRI [Suspect]
     Active Substance: AMANTADINE
     Dosage: 137 MG, 1X/DAY AT BEDTIME
     Route: 048
     Dates: start: 201811
  5. FOSAMAX [Concomitant]
     Active Substance: ALENDRONATE SODIUM
     Dosage: 70 MG, 1X/WEEK ON SUNDAY
     Route: 048
  6. ASTEPRO [Concomitant]
     Active Substance: AZELASTINE HYDROCHLORIDE
     Dosage: 2 ACTUATIONS, 1X/DAY
     Route: 045
  7. SINEMET [Concomitant]
     Active Substance: CARBIDOPA\LEVODOPA
     Dosage: 1 TABLETS, 4X/DAY
     Route: 048
  8. KLONOPIN [Concomitant]
     Active Substance: CLONAZEPAM
     Dosage: 0.5 MG, UP TO 2X/DAY AS NEEDED
  9. GOCOVRI [Suspect]
     Active Substance: AMANTADINE
     Indication: DYSKINESIA
     Dosage: 137 MG, 1X/DAY AT BEDTIME
     Route: 048
     Dates: start: 20180120, end: 20180126

REACTIONS (6)
  - Gait disturbance [Unknown]
  - Speech disorder [Recovered/Resolved]
  - Balance disorder [Unknown]
  - Hallucinations, mixed [Recovered/Resolved]
  - Dysarthria [Recovered/Resolved]
  - Tremor [Unknown]

NARRATIVE: CASE EVENT DATE: 2018
